FAERS Safety Report 7797496-4 (Version None)
Quarter: 2011Q4

REPORT INFORMATION
  Report Type: 
  Country: None (occurrence: None)
  Receive Date: 20111003
  Receipt Date: 20110917
  Transmission Date: 20120403
  Serious: Yes (Hospitalization)
  Sender: FDA-Public Use
  Company Number: 2011AP002107

PATIENT
  Age: 61 Year
  Sex: Male

DRUGS (2)
  1. CITALOPRAM HYDROBROMIDE [Suspect]
     Indication: DEPRESSION
  2. FLUOROURACIL [Suspect]
     Indication: RECTAL CANCER
     Dosage: 225 MG/M2;QD

REACTIONS (9)
  - ELECTROCARDIOGRAM ST SEGMENT ELEVATION [None]
  - FATIGUE [None]
  - RALES [None]
  - C-REACTIVE PROTEIN INCREASED [None]
  - WHITE BLOOD CELLS URINE POSITIVE [None]
  - SINUS BRADYCARDIA [None]
  - DIZZINESS [None]
  - CARDIOTOXICITY [None]
  - HAEMOGLOBIN DECREASED [None]
